FAERS Safety Report 12291439 (Version 3)
Quarter: 2017Q1

REPORT INFORMATION
  Report Type: Report from Study
  Country: US (occurrence: US)
  Receive Date: 20160421
  Receipt Date: 20170124
  Transmission Date: 20170428
  Serious: No
  Sender: FDA-Public Use
  Company Number: US-AMGEN-USASL2016022907

PATIENT
  Age: 82 Year
  Sex: Male
  Weight: 86.62 kg

DRUGS (1)
  1. REPATHA [Suspect]
     Active Substance: EVOLOCUMAB
     Indication: PRODUCT USED FOR UNKNOWN INDICATION
     Dosage: 140 MG, Q2WK
     Route: 058
     Dates: end: 201602

REACTIONS (7)
  - Erythema [Unknown]
  - Skin reaction [Unknown]
  - Rash [Unknown]
  - Bone pain [Unknown]
  - Headache [Not Recovered/Not Resolved]
  - Pruritus generalised [Unknown]
  - Myalgia [Unknown]

NARRATIVE: CASE EVENT DATE: 20160222
